FAERS Safety Report 4669543-X (Version None)
Quarter: 2005Q2

REPORT INFORMATION
  Report Type: 
  Country: None (occurrence: None)
  Receive Date: 20050523
  Receipt Date: 20050511
  Transmission Date: 20051028
  Serious: Yes (Hospitalization)
  Sender: FDA-Public Use
  Company Number: PHBS2005CA06738

PATIENT
  Age: 41 Year
  Sex: Male

DRUGS (2)
  1. RISPERIDONE [Concomitant]
  2. TERBINAFINE HCL [Suspect]
     Dosage: 250 MG, QD
     Route: 048
     Dates: start: 20050318, end: 20050502

REACTIONS (5)
  - HAEMATOCRIT DECREASED [None]
  - HAEMOGLOBIN DECREASED [None]
  - PLATELET COUNT DECREASED [None]
  - RED BLOOD CELL COUNT DECREASED [None]
  - WHITE BLOOD CELL COUNT DECREASED [None]
